FAERS Safety Report 13399816 (Version 1)
Quarter: 2017Q2

REPORT INFORMATION
  Report Type: Spontaneous
  Country: US (occurrence: US)
  Receive Date: 20170404
  Receipt Date: 20170404
  Transmission Date: 20170830
  Serious: No
  Sender: FDA-Public Use
  Company Number: None

PATIENT

DRUGS (2)
  1. EVOTAZ [Suspect]
     Active Substance: ATAZANAVIR SULFATE\COBICISTAT
  2. EVOXAC [Suspect]
     Active Substance: CEVIMELINE HYDROCHLORIDE

REACTIONS (2)
  - Transcription medication error [None]
  - Product name confusion [None]
